FAERS Safety Report 9102889 (Version 1)
Quarter: 2013Q1

REPORT INFORMATION
  Report Type: Report from Study
  Country: FR (occurrence: FR)
  Receive Date: 20130218
  Receipt Date: 20130218
  Transmission Date: 20140127
  Serious: Yes (Other)
  Sender: FDA-Public Use
  Company Number: FR-BRISTOL-MYERS SQUIBB COMPANY-17388208

PATIENT
  Age: 62 Year
  Sex: Male

DRUGS (3)
  1. CETUXIMAB [Suspect]
     Indication: HEAD AND NECK CANCER
     Dates: start: 20111212
  2. CARBOPLATIN [Suspect]
     Indication: HEAD AND NECK CANCER
     Dates: start: 20111219
  3. FLUOROURACIL [Suspect]
     Indication: HEAD AND NECK CANCER
     Dates: start: 20111219

REACTIONS (2)
  - Mucosal inflammation [Recovered/Resolved]
  - Aphagia [Recovered/Resolved]
